FAERS Safety Report 6604981-7 (Version None)
Quarter: 2010Q1

REPORT INFORMATION
  Report Type: 
  Country: None (occurrence: None)
  Receive Date: 20100226
  Receipt Date: 20100104
  Transmission Date: 20100710
  Serious: Yes (Death)
  Sender: FDA-Public Use
  Company Number: US-BAYER-201016932GPV

PATIENT
  Age: 33 Year
  Sex: Female

DRUGS (5)
  1. NIFEDIPINE [Suspect]
  2. DIPHENHYDRAMINE HCL [Suspect]
  3. SIMVASTATIN [Suspect]
  4. DILTIAZEM HCL [Suspect]
  5. HYDRALAZINE HCL [Suspect]

REACTIONS (1)
  - DRUG TOXICITY [None]
